FAERS Safety Report 4385207-4 (Version None)
Quarter: 2004Q2

REPORT INFORMATION
  Report Type: 
  Country: None (occurrence: None)
  Receive Date: 20040625
  Receipt Date: 20030721
  Transmission Date: 20050107
  Serious: Yes (Hospitalization)
  Sender: FDA-Public Use
  Company Number: US-MERCK-0307USA02501

PATIENT
  Age: 70 Year
  Sex: Female

DRUGS (17)
  1. VITAMIN E [Concomitant]
     Route: 065
  2. ASPIRIN [Concomitant]
     Route: 065
  3. CELEBREX [Concomitant]
     Route: 065
     Dates: start: 20010201
  4. PLAVIX [Concomitant]
     Route: 065
     Dates: start: 20000301
  5. ANZEMET [Concomitant]
     Route: 065
     Dates: start: 20010501
  6. ZETIA [Suspect]
     Indication: BLOOD CHOLESTEROL INCREASED
     Route: 048
     Dates: start: 20030601, end: 20030701
  7. ALLEGRA [Concomitant]
     Route: 065
     Dates: start: 20020601
  8. HYDRODIURIL [Concomitant]
     Route: 065
     Dates: start: 20011101
  9. IMDUR [Concomitant]
     Route: 065
     Dates: start: 20010601
  10. PREVACID [Concomitant]
     Route: 065
     Dates: start: 20030301
  11. ANTIVERT [Concomitant]
     Route: 065
  12. K-DUR 10 [Concomitant]
     Route: 065
     Dates: start: 20020401, end: 20030601
  13. K-DUR 10 [Concomitant]
     Route: 065
     Dates: start: 20030601
  14. ZOCOR [Suspect]
     Route: 048
     Dates: start: 20010801, end: 20030701
  15. ZOCOR [Suspect]
     Route: 048
     Dates: start: 20010101, end: 20010801
  16. BACTRIM DS [Suspect]
     Route: 065
     Dates: start: 20030627, end: 20030601
  17. MAVIK [Concomitant]
     Route: 065
     Dates: start: 20010201

REACTIONS (3)
  - CHEST PAIN [None]
  - RHABDOMYOLYSIS [None]
  - SINUSITIS [None]
